FAERS Safety Report 10342410 (Version 5)
Quarter: 2016Q1

REPORT INFORMATION
  Report Type: Spontaneous
  Country: US (occurrence: US)
  Receive Date: 20140725
  Receipt Date: 20160211
  Transmission Date: 20160525
  Serious: Yes (Other)
  Sender: FDA-Public Use
  Company Number: US-GLAXOSMITHKLINE-A1071424A

PATIENT
  Age: 30 Year
  Sex: Male

DRUGS (2)
  1. LAMICTAL XR [Suspect]
     Active Substance: LAMOTRIGINE
     Indication: PRODUCT USED FOR UNKNOWN INDICATION
     Dosage: 250 MG, U
     Route: 065
     Dates: start: 20101216
  2. LAMICTAL XR [Suspect]
     Active Substance: LAMOTRIGINE
     Dosage: 500 MG, U
     Route: 065

REACTIONS (3)
  - Loss of consciousness [Unknown]
  - Seizure [Recovered/Resolved]
  - Drug dose omission [Unknown]

NARRATIVE: CASE EVENT DATE: 201402
